FAERS Safety Report 16713568 (Version 1)
Quarter: 2019Q3

REPORT INFORMATION
  Report Type: Spontaneous
  Country: DE (occurrence: DE)
  Receive Date: 20190819
  Receipt Date: 20190819
  Transmission Date: 20191004
  Serious: Yes (Other)
  Sender: FDA-Public Use
  Company Number: DE-GLENMARK PHARMACEUTICALS-2019GMK042634

PATIENT

DRUGS (2)
  1. TOPIRAMAT GLENMARK 25MG FILMTABLETTEN [Suspect]
     Active Substance: TOPIRAMATE
     Dosage: 1 DF, AM (NEXT TWO DAYS ONE TABLET IN THE MORNING)
     Route: 048
  2. TOPIRAMAT GLENMARK 25MG FILMTABLETTEN [Suspect]
     Active Substance: TOPIRAMATE
     Indication: MIGRAINE PROPHYLAXIS
     Dosage: 1 DF, HS (FOR THE FIRST 10 DAYS ONE TABLET IN THE EVENING)
     Route: 048

REACTIONS (3)
  - Hypertension [Recovered/Resolved]
  - Crying [Recovered/Resolved]
  - Insomnia [Recovered/Resolved]
